FAERS Safety Report 13351947 (Version 1)
Quarter: 2017Q1

REPORT INFORMATION
  Report Type: Spontaneous
  Country: US (occurrence: US)
  Receive Date: 20170320
  Receipt Date: 20170320
  Transmission Date: 20170429
  Serious: No
  Sender: FDA-Public Use
  Company Number: US-SA-2016SA197235

PATIENT
  Age: 56 Year
  Sex: Male

DRUGS (2)
  1. NASACORT ALLERGY 24HR [Suspect]
     Active Substance: TRIAMCINOLONE ACETONIDE
     Indication: HYPERSENSITIVITY
     Dosage: NASAL SPRAY, LIQUID AT A DOSE OF 55MCG EACH NARES
     Route: 045
  2. NASACORT ALLERGY 24HR [Suspect]
     Active Substance: TRIAMCINOLONE ACETONIDE
     Indication: HYPERSENSITIVITY
     Dosage: NASAL SPRAY, LIQUID AT A DOSE OF 55MCG EACH NARES
     Route: 045

REACTIONS (3)
  - Medication error [Unknown]
  - Product quality issue [Unknown]
  - Drug ineffective [Unknown]
